FAERS Safety Report 17260696 (Version 2)
Quarter: 2020Q1

REPORT INFORMATION
  Report Type: Spontaneous
  Country: US (occurrence: US)
  Receive Date: 20200113
  Receipt Date: 20200218
  Transmission Date: 20200409
  Serious: No
  Sender: FDA-Public Use
  Company Number: US-CIPLA LTD.-2019US07569

PATIENT

DRUGS (3)
  1. TESTOSTERONE. [Suspect]
     Active Substance: TESTOSTERONE
     Indication: BLOOD TESTOSTERONE DECREASED
     Dosage: 0.75 MILLILITER, ONCE A WEEK
     Route: 030
     Dates: start: 201902
  2. EXEMESTANE. [Suspect]
     Active Substance: EXEMESTANE
     Indication: PRODUCT USED FOR UNKNOWN INDICATION
     Dosage: HALF OF A 25MG TABLET, ONCE A WEEK
     Route: 048
     Dates: start: 201906
  3. TESTOSTERONE. [Suspect]
     Active Substance: TESTOSTERONE
     Dosage: 0.75 MILLILITER, ONCE A WEEK
     Route: 030
     Dates: start: 201910

REACTIONS (6)
  - Off label use [Unknown]
  - Product use issue [Unknown]
  - Recalled product administered [Unknown]
  - Drug ineffective [Unknown]
  - Liquid product physical issue [Unknown]
  - Product packaging issue [Unknown]

NARRATIVE: CASE EVENT DATE: 201906
